FAERS Safety Report 6355670-8 (Version None)
Quarter: 2009Q3

REPORT INFORMATION
  Report Type: 
  Country: None (occurrence: None)
  Receive Date: 20090910
  Receipt Date: 20090827
  Transmission Date: 20100115
  Serious: Yes (Other)
  Sender: FDA-Public Use
  Company Number: ADR18582009

PATIENT
  Age: 82 Year
  Sex: Female

DRUGS (2)
  1. SIMVASTATIN [Suspect]
     Indication: HYPERCHOLESTEROLAEMIA
     Dosage: 20 MG ORAL
     Route: 048
     Dates: start: 20090514, end: 20090701
  2. ASPIRIN [Concomitant]

REACTIONS (2)
  - NIGHTMARE [None]
  - SLEEP DISORDER [None]
